FAERS Safety Report 7415506-0 (Version None)
Quarter: 2011Q2

REPORT INFORMATION
  Report Type: 
  Country: None (occurrence: None)
  Receive Date: 20110414
  Receipt Date: 20110404
  Transmission Date: 20111010
  Serious: Yes (Other)
  Sender: FDA-Public Use
  Company Number: JP-MILLENNIUM PHARMACEUTICALS, INC.-2007-04334

PATIENT

DRUGS (12)
  1. ACINON [Concomitant]
     Indication: PROPHYLAXIS
     Dosage: 300.00 MG, UNK
     Route: 048
     Dates: start: 20070917, end: 20071015
  2. LAXOBERON [Concomitant]
     Indication: ABDOMINAL DISTENSION
     Dosage: 10.00 ML, UNK
     Route: 048
     Dates: start: 20071004, end: 20071004
  3. PREDONINE [Concomitant]
     Indication: PROPHYLAXIS
     Dosage: 15.00 MG, UNK
     Route: 048
     Dates: start: 20070921, end: 20070925
  4. GASCON [Concomitant]
     Indication: PROPHYLAXIS
     Dosage: 120.00 MG, UNK
     Route: 048
     Dates: start: 20070921, end: 20071015
  5. DEXAMETHASONE [Concomitant]
     Indication: MULTIPLE MYELOMA
     Dosage: 24 MG, UNK
     Route: 042
     Dates: start: 20070907, end: 20070918
  6. VELCADE [Suspect]
     Indication: MULTIPLE MYELOMA
     Dosage: 2.25 MG, UNK
     Route: 042
     Dates: start: 20070907, end: 20071008
  7. BERIZYM [Concomitant]
     Indication: PROPHYLAXIS
     Dosage: 1.00 G, UNK
     Route: 048
     Dates: start: 20070917, end: 20070926
  8. LAC B [Concomitant]
     Indication: PROPHYLAXIS
     Dosage: 3.00 G, UNK
     Route: 048
     Dates: start: 20071010, end: 20071015
  9. TANNALBIN [Concomitant]
     Indication: PROPHYLAXIS
     Dosage: 3.00 G, UNK
     Route: 048
     Dates: start: 20071010, end: 20071015
  10. DEXAMETHASONE [Concomitant]
     Dosage: 12 MG, UNK
     Route: 042
     Dates: start: 20070928, end: 20071009
  11. PRIMPERAN TAB [Concomitant]
     Indication: PROPHYLAXIS
     Dosage: 5.00 MG, UNK
     Route: 048
     Dates: start: 20070919, end: 20070925
  12. PANTOL                             /00223901/ [Concomitant]
     Indication: ABDOMINAL DISTENSION
     Dosage: 250 MG, UNK
     Route: 042
     Dates: start: 20071004, end: 20071004

REACTIONS (2)
  - PNEUMONIA [None]
  - DEPRESSED LEVEL OF CONSCIOUSNESS [None]
